FAERS Safety Report 18368530 (Version 2)
Quarter: 2021Q1

REPORT INFORMATION
  Report Type: Spontaneous
  Country: US (occurrence: US)
  Receive Date: 20201011
  Receipt Date: 20210115
  Transmission Date: 20210419
  Serious: Yes (Other)
  Sender: FDA-Public Use
  Company Number: US-009507513-2010USA001856

PATIENT
  Sex: Male

DRUGS (1)
  1. BELSOMRA [Suspect]
     Active Substance: SUVOREXANT
     Indication: INSOMNIA
     Dosage: 10 MG/ X 1 A DAY
     Route: 048

REACTIONS (3)
  - Product label issue [Unknown]
  - Cataract [Unknown]
  - Product colour issue [Unknown]
